FAERS Safety Report 12569224 (Version 1)
Quarter: 2016Q3

REPORT INFORMATION
  Report Type: Report from Study
  Country: BE (occurrence: BE)
  Receive Date: 20160719
  Receipt Date: 20160719
  Transmission Date: 20161109
  Serious: Yes (Hospitalization)
  Sender: FDA-Public Use
  Company Number: BE-ROCHE-1797049

PATIENT
  Age: 79 Year
  Sex: Male

DRUGS (3)
  1. RANIBIZUMAB [Suspect]
     Active Substance: RANIBIZUMAB
     Dosage: 0.5 MG, UNK
     Route: 050
     Dates: start: 20160428, end: 20160428
  2. RANIBIZUMAB [Suspect]
     Active Substance: RANIBIZUMAB
     Indication: RETINAL VEIN OCCLUSION
     Dosage: 0.5 MG, UNK
     Route: 050
     Dates: start: 20150319
  3. ASAFLOW [Concomitant]
     Active Substance: ASPIRIN
     Indication: PRODUCT USED FOR UNKNOWN INDICATION
     Dosage: 80 MG, QD
     Route: 065

REACTIONS (1)
  - Cerebrovascular accident [Recovered/Resolved]

NARRATIVE: CASE EVENT DATE: 20160429
